FAERS Safety Report 9904262 (Version 1)
Quarter: 2014Q1

REPORT INFORMATION
  Report Type: Report from Study
  Country: US (occurrence: US)
  Receive Date: 20140218
  Receipt Date: 20140218
  Transmission Date: 20141002
  Serious: Yes (Death)
  Sender: FDA-Public Use
  Company Number: US-ROCHE-1318152

PATIENT
  Sex: Male
  Weight: 92.16 kg

DRUGS (23)
  1. AVASTIN [Suspect]
     Indication: COLON CANCER
     Route: 042
     Dates: end: 20111215
  2. AVASTIN [Suspect]
     Indication: METASTASES TO LIVER
     Route: 042
     Dates: end: 20120628
  3. AVASTIN [Suspect]
     Route: 042
     Dates: start: 20120913
  4. AVASTIN [Suspect]
     Route: 042
     Dates: start: 20121003
  5. XELODA [Suspect]
     Indication: COLON CANCER
     Route: 065
  6. XELODA [Suspect]
     Indication: METASTASES TO LIVER
  7. FOLINIC ACID [Concomitant]
     Dosage: FOLFIRI
     Route: 065
     Dates: end: 20120628
  8. FLUOROURACIL [Concomitant]
     Dosage: FOLFIRI
     Route: 065
     Dates: end: 20120628
  9. IRINOTECAN [Concomitant]
     Dosage: FOLFIRI
     Route: 065
     Dates: end: 20120628
  10. FOLINIC ACID [Concomitant]
     Dosage: M-FOLFOX-6
     Route: 065
     Dates: end: 20111215
  11. FLUOROURACIL [Concomitant]
     Dosage: M-FOLFOX-6
     Route: 065
     Dates: end: 20111215
  12. OXALIPLATIN [Concomitant]
     Dosage: M-FOLFOX-6
     Route: 065
     Dates: end: 20111215
  13. BENADRYL (UNITED STATES) [Concomitant]
     Route: 048
  14. HEPARIN [Concomitant]
     Dosage: 100 UNIT/ML INJECTION
     Route: 065
  15. COMPAZINE SR [Concomitant]
     Route: 048
  16. LORAZEPAM [Concomitant]
     Indication: NAUSEA
     Route: 048
  17. LORAZEPAM [Concomitant]
     Indication: ANXIETY
  18. DECADRON [Concomitant]
     Dosage: ALSO, 1 TAB DAILY FOR 4 DAYS AFTER CHEMO
     Route: 048
  19. IMODIUM [Concomitant]
     Route: 048
  20. LORATADINE [Concomitant]
     Route: 048
  21. LORATAB [Concomitant]
     Dosage: 5 MG-500 MG TABLET, 1-2 BY MOUTH TID
     Route: 048
  22. NYSTATIN/TRIAMCINOLONE [Concomitant]
     Route: 065
  23. ZOLOFT [Concomitant]
     Indication: DEPRESSION
     Route: 048

REACTIONS (13)
  - Death [Fatal]
  - Neuropathy peripheral [Unknown]
  - Constipation [Unknown]
  - Synovial cyst [Unknown]
  - Congenital oral malformation [Unknown]
  - Insomnia [Unknown]
  - Fatigue [Unknown]
  - Nausea [Unknown]
  - Diarrhoea [Unknown]
  - Pain [Unknown]
  - Deafness [Unknown]
  - Rales [Unknown]
  - Disease progression [Unknown]
